FAERS Safety Report 5127826-3 (Version None)
Quarter: 2006Q4

REPORT INFORMATION
  Report Type: 
  Country: None (occurrence: None)
  Receive Date: 20061016
  Receipt Date: 20061010
  Transmission Date: 20070319
  Serious: Yes (Other)
  Sender: FDA-Public Use
  Company Number: US-MERCK-0610USA06793

PATIENT
  Age: 59 Year
  Sex: Female
  Weight: 91 kg

DRUGS (2)
  1. PEPCID [Suspect]
     Route: 048
     Dates: start: 20060922, end: 20060901
  2. MOTRIN IB [Suspect]
     Indication: PAIN
     Route: 048
     Dates: start: 20060909

REACTIONS (3)
  - DYSPHAGIA [None]
  - PHARYNGEAL OEDEMA [None]
  - THROAT TIGHTNESS [None]
